FAERS Safety Report 10239761 (Version 1)
Quarter: 2014Q2

REPORT INFORMATION
  Report Type: Spontaneous
  Country: US (occurrence: None)
  Receive Date: 20140612
  Receipt Date: 20140612
  Transmission Date: 20141212
  Serious: Yes (Hospitalization)
  Sender: FDA-Public Use
  Company Number: 0017469130A

PATIENT
  Age: 38 Year
  Sex: Female

DRUGS (4)
  1. MB ANTIOXIDANT DAY CREME SPF 20 [Suspect]
     Dosage: DERMAL
     Dates: start: 20131203, end: 201402
  2. MB SKIN BRIGHTENING DECOLLETE + NECK TREATMENT SPF 15 [Suspect]
     Dosage: DERMAL
     Dates: start: 20131203, end: 201402
  3. DAILY MULTIVITAMINS [Concomitant]
  4. MIGRAINE MEDICATION [Concomitant]

REACTIONS (4)
  - Respiratory disorder [None]
  - Cardiac disorder [None]
  - High risk pregnancy [None]
  - Maternal exposure during pregnancy [None]
